FAERS Safety Report 9330264 (Version 1)
Quarter: 2013Q2

REPORT INFORMATION
  Report Type: Report from Study
  Country: VE (occurrence: VE)
  Receive Date: 20130605
  Receipt Date: 20130605
  Transmission Date: 20140414
  Serious: Yes (Other)
  Sender: FDA-Public Use
  Company Number: VE-ABBOTT-13P-178-1099214-00

PATIENT
  Age: 54 Year
  Sex: Female
  Weight: 53 kg

DRUGS (3)
  1. HUMIRA [Suspect]
     Indication: RHEUMATOID ARTHRITIS
     Route: 058
     Dates: start: 20110117, end: 201202
  2. HUMIRA [Suspect]
     Dosage: ONE PRE-FILLED SYRINGE EVERY 15 DAYS
     Route: 058
     Dates: start: 201205, end: 201205
  3. COZAAR [Concomitant]
     Indication: HYPERTENSION
     Dosage: 50 MG DAILY
     Route: 048

REACTIONS (4)
  - Tuberculin test positive [Recovering/Resolving]
  - Bronchitis [Not Recovered/Not Resolved]
  - Respiratory disorder [Unknown]
  - Respiratory disorder [Unknown]
